FAERS Safety Report 18887165 (Version 1)
Quarter: 2021Q1

REPORT INFORMATION
  Report Type: Report from Study
  Country: US (occurrence: US)
  Receive Date: 20210212
  Receipt Date: 20210212
  Transmission Date: 20210420
  Serious: Yes (Hospitalization)
  Sender: FDA-Public Use
  Company Number: US-PFIZER INC-2021123746

PATIENT
  Age: 40 Year
  Sex: Male
  Weight: 65.76 kg

DRUGS (6)
  1. LORLATINIB [Suspect]
     Active Substance: LORLATINIB
     Indication: NON-SMALL CELL LUNG CANCER
     Dosage: 50, QD
     Route: 048
     Dates: start: 20201217, end: 20210203
  2. CLINDAMYCIN. [Suspect]
     Active Substance: CLINDAMYCIN
     Dosage: UNK
  3. HYDROCORTISONE ACETATE. [Suspect]
     Active Substance: HYDROCORTISONE ACETATE
  4. COMPAZINE [Suspect]
     Active Substance: PROCHLORPERAZINE MALEATE
  5. ALBUTEROL. [Suspect]
     Active Substance: ALBUTEROL
  6. BINIMETINIB [Suspect]
     Active Substance: BINIMETINIB
     Indication: NON-SMALL CELL LUNG CANCER
     Dosage: 30, BID
     Route: 048
     Dates: start: 20201217, end: 20210203

REACTIONS (2)
  - Muscular weakness [Unknown]
  - Dyspnoea [Unknown]

NARRATIVE: CASE EVENT DATE: 20210204
